FAERS Safety Report 15117830 (Version 1)
Quarter: 2018Q3

REPORT INFORMATION
  Report Type: Spontaneous
  Country: DK (occurrence: DK)
  Receive Date: 20180706
  Receipt Date: 20180706
  Transmission Date: 20181010
  Serious: Yes (Life-Threatening, Hospitalization)
  Sender: FDA-Public Use
  Company Number: DK-CELGENEUS-DNK-20180700565

PATIENT
  Age: 16 Year
  Sex: Male
  Weight: 68 kg

DRUGS (2)
  1. THALIDOMIDE CELGENE [Suspect]
     Active Substance: THALIDOMIDE
     Indication: BEHCET^S SYNDROME
     Dosage: 100 MILLIGRAM
     Route: 048
     Dates: start: 20170116, end: 20180523
  2. ENBREL [Concomitant]
     Active Substance: ETANERCEPT
     Indication: BEHCET^S SYNDROME
     Route: 065
     Dates: start: 20151201, end: 20170116

REACTIONS (5)
  - Chest discomfort [Unknown]
  - Cough [Unknown]
  - Night sweats [Unknown]
  - Hodgkin^s disease [Unknown]
  - Pyrexia [Unknown]

NARRATIVE: CASE EVENT DATE: 201804
